FAERS Safety Report 15769292 (Version 20)
Quarter: 2021Q3

REPORT INFORMATION
  Report Type: Other
  Country: DE (occurrence: DE)
  Receive Date: 20181228
  Receipt Date: 20210923
  Transmission Date: 20211014
  Serious: Yes (Hospitalization, Other)
  Sender: FDA-Public Use
  Company Number: DE-ROCHE-2233008

PATIENT
  Age: 46 Year
  Sex: Female

DRUGS (13)
  1. OCREVUS [Suspect]
     Active Substance: OCRELIZUMAB
     Route: 042
     Dates: start: 20201207
  2. COMIRNATY [Suspect]
     Active Substance: TOZINAMERAN
     Route: 065
     Dates: start: 20210706, end: 20210706
  3. ESOMEPRAZOL [Concomitant]
     Active Substance: ESOMEPRAZOLE
  4. NOVALGIN (METAMIZOLE SODIUM) [Concomitant]
     Active Substance: METAMIZOLE SODIUM
  5. OCREVUS [Suspect]
     Active Substance: OCRELIZUMAB
     Route: 042
  6. COMIRNATY [Suspect]
     Active Substance: TOZINAMERAN
     Indication: COVID-19 IMMUNISATION
     Route: 065
     Dates: start: 20210615, end: 20210615
  7. OCREVUS [Suspect]
     Active Substance: OCRELIZUMAB
     Dosage: ONCE
     Route: 042
     Dates: start: 20181213, end: 20181213
  8. OCREVUS [Suspect]
     Active Substance: OCRELIZUMAB
     Route: 042
     Dates: start: 20210819
  9. OCREVUS [Suspect]
     Active Substance: OCRELIZUMAB
     Route: 042
     Dates: start: 20200604
  10. DEKRISTOL [Concomitant]
     Active Substance: CHOLECALCIFEROL
  11. NOVALGIN (METAMIZOLE SODIUM) [Concomitant]
     Active Substance: METAMIZOLE SODIUM
     Route: 048
  12. OCREVUS [Suspect]
     Active Substance: OCRELIZUMAB
     Indication: RELAPSING-REMITTING MULTIPLE SCLEROSIS
     Route: 042
     Dates: start: 20181126, end: 20181126
  13. FAMPYRA [Concomitant]
     Active Substance: DALFAMPRIDINE
     Dosage: 1?0?1

REACTIONS (30)
  - Erysipelas [Unknown]
  - Herpes zoster [Recovered/Resolved]
  - Head injury [Recovered/Resolved]
  - Pyrexia [Recovered/Resolved]
  - Thrombosis [Recovered/Resolved]
  - Central nervous system lesion [Not Recovered/Not Resolved]
  - Fatigue [Recovered/Resolved]
  - Lymphoedema [Recovering/Resolving]
  - Injection site inflammation [Recovered/Resolved]
  - Multiple sclerosis relapse [Recovered/Resolved]
  - Visual impairment [Not Recovered/Not Resolved]
  - Fatigue [Recovered/Resolved]
  - Ligament rupture [Not Recovered/Not Resolved]
  - Middle insomnia [Not Recovered/Not Resolved]
  - Back pain [Recovered/Resolved]
  - Muscle strain [Recovered/Resolved]
  - Phlebitis [Not Recovered/Not Resolved]
  - Fatigue [Recovered/Resolved]
  - Headache [Recovered/Resolved]
  - Dizziness [Recovered/Resolved]
  - Fall [Unknown]
  - Purulence [Recovered/Resolved]
  - Visual impairment [Not Recovered/Not Resolved]
  - Pain [Not Recovered/Not Resolved]
  - Balance disorder [Recovered/Resolved]
  - Infection [Recovered/Resolved]
  - Scar [Recovering/Resolving]
  - Oral herpes [Recovered/Resolved]
  - Pollakiuria [Recovering/Resolving]
  - Pain in extremity [Not Recovered/Not Resolved]

NARRATIVE: CASE EVENT DATE: 20181126
